FAERS Safety Report 18963400 (Version 1)
Quarter: 2021Q1

REPORT INFORMATION
  Report Type: Other
  Country: US (occurrence: US)
  Receive Date: 20210303
  Receipt Date: 20210303
  Transmission Date: 20210420
  Serious: Yes (Other)
  Sender: FDA-Public Use
  Company Number: US-STERIS CORPORATION-2107525

PATIENT

DRUGS (1)
  1. BACTOSHIELD CHG [Suspect]
     Active Substance: CHLORHEXIDINE GLUCONATE

REACTIONS (1)
  - Rash [None]

NARRATIVE: CASE EVENT DATE: 20210202
